FAERS Safety Report 6968408-8 (Version None)
Quarter: 2010Q3

REPORT INFORMATION
  Report Type: 
  Country: None (occurrence: None)
  Receive Date: 20100907
  Receipt Date: 20100824
  Transmission Date: 20110219
  Serious: Yes (Other)
  Sender: FDA-Public Use
  Company Number: PHEH2008US06156

PATIENT
  Sex: Female
  Weight: 64.399 kg

DRUGS (14)
  1. ESTRADIOL [Suspect]
  2. PREMPRO [Suspect]
     Dosage: UNK
     Dates: start: 19980512, end: 20010614
  3. MEDROXYPROGESTERONE [Suspect]
     Dosage: UNK
     Dates: start: 19980512, end: 20010614
  4. LESCOL [Concomitant]
  5. ZESTRIL [Concomitant]
  6. SYNTHROID [Concomitant]
  7. CYTOXAN [Concomitant]
     Dosage: UNK
     Dates: start: 20000201, end: 20000607
  8. ADRIAMYCIN PFS [Concomitant]
     Dosage: UNK
     Dates: start: 20000201, end: 20000607
  9. ESTROGEN NOS [Concomitant]
  10. PREVACID [Concomitant]
  11. LOZOL [Concomitant]
  12. SEREVENT [Concomitant]
  13. FOSAMAX [Concomitant]
  14. PROVERA [Concomitant]

REACTIONS (28)
  - ANGIOPLASTY [None]
  - ANHEDONIA [None]
  - ANXIETY [None]
  - ARTHRITIS [None]
  - BIOPSY BREAST [None]
  - BREAST CANCER [None]
  - BREAST LUMP REMOVAL [None]
  - BREAST TENDERNESS [None]
  - CARDIAC FAILURE CONGESTIVE [None]
  - CHEST PAIN [None]
  - EMOTIONAL DISTRESS [None]
  - ERYTHEMA [None]
  - FATIGUE [None]
  - GASTROOESOPHAGEAL REFLUX DISEASE [None]
  - HIATUS HERNIA [None]
  - HOT FLUSH [None]
  - HYPERTENSION [None]
  - HYPOTHYROIDISM [None]
  - HYSTERECTOMY [None]
  - LYMPHADENECTOMY [None]
  - MELANOCYTIC NAEVUS [None]
  - MUSCULOSKELETAL DISCOMFORT [None]
  - PAIN [None]
  - RADIATION SKIN INJURY [None]
  - REFLUX OESOPHAGITIS [None]
  - SEBORRHOEIC KERATOSIS [None]
  - URINARY INCONTINENCE [None]
  - UTERINE LEIOMYOMA [None]
